FAERS Safety Report 6161014-7 (Version None)
Quarter: 2009Q2

REPORT INFORMATION
  Report Type: 
  Country: None (occurrence: None)
  Receive Date: 20090420
  Receipt Date: 20090409
  Transmission Date: 20091009
  Serious: Yes (Hospitalization)
  Sender: FDA-Public Use
  Company Number: FR-PFIZER INC-2009195831

PATIENT

DRUGS (1)
  1. CELEBREX [Suspect]
     Dosage: UNK

REACTIONS (5)
  - DERMATITIS EXFOLIATIVE [None]
  - LIVER DISORDER [None]
  - RENAL DISORDER [None]
  - SKIN EXFOLIATION [None]
  - TOXIC SKIN ERUPTION [None]
